FAERS Safety Report 17821442 (Version 1)
Quarter: 2020Q2

REPORT INFORMATION
  Report Type: Spontaneous
  Country: FR (occurrence: FR)
  Receive Date: 20200525
  Receipt Date: 20200525
  Transmission Date: 20200714
  Serious: Yes (Death, Other)
  Sender: FDA-Public Use
  Company Number: FR-B.I. PHARMACEUTICALS,INC./RIDGEFIELD-2020-12-026129

PATIENT
  Age: 77 Year
  Sex: Male

DRUGS (2)
  1. OFEV [Suspect]
     Active Substance: NINTEDANIB
     Indication: PULMONARY FIBROSIS
     Route: 048
     Dates: start: 20200220
  2. ENDOXAN [CYCLOPHOSPHAMIDE MONOHYDRATE] [Suspect]
     Active Substance: CYCLOPHOSPHAMIDE
     Indication: SYSTEMIC SCLERODERMA
     Route: 042
     Dates: start: 20200220, end: 20200310

REACTIONS (2)
  - Myocardial infarction [Recovered/Resolved with Sequelae]
  - Atrial fibrillation [Fatal]

NARRATIVE: CASE EVENT DATE: 20200408
